FAERS Safety Report 4625811-9 (Version None)
Quarter: 2005Q1

REPORT INFORMATION
  Report Type: 
  Country: None (occurrence: None)
  Receive Date: 20050330
  Receipt Date: 20050317
  Transmission Date: 20050727
  Serious: Yes (Life-Threatening, Hospitalization)
  Sender: FDA-Public Use
  Company Number: 213354

PATIENT
  Age: 63 Year
  Sex: Male
  Weight: 65.4 kg

DRUGS (11)
  1. AVASTIN [Suspect]
     Indication: COLORECTAL CANCER METASTATIC
     Dosage: 465 MG, Q3W, INTRAVENOUS
     Route: 042
     Dates: start: 20041207, end: 20050304
  2. TRAMADOL HCL [Concomitant]
  3. ACETAMINOPHEN [Concomitant]
  4. FUROSEMIDE [Concomitant]
  5. LACTULOSE [Concomitant]
  6. ZOPICLONE (ZOPICLONE) [Concomitant]
  7. PLATELETS (PLATELET CONCENTRATE) [Concomitant]
  8. FRESH FROZEN PLASMA [Concomitant]
  9. BLOOD TRANSFUSION (BLOOD, WHOLE) [Concomitant]
  10. GENTAMICIN [Concomitant]
  11. CEFRADINE (CEPHRADINE) [Concomitant]

REACTIONS (13)
  - ACUTE CORONARY SYNDROME [None]
  - GASTRIC ULCER [None]
  - GASTROINTESTINAL HAEMORRHAGE [None]
  - HAEMODYNAMIC INSTABILITY [None]
  - HAEMOGLOBIN DECREASED [None]
  - HYDROTHORAX [None]
  - HYPOTENSION [None]
  - NOSOCOMIAL INFECTION [None]
  - PNEUMONIA [None]
  - PNEUMOTHORAX [None]
  - RENAL IMPAIRMENT [None]
  - URINARY TRACT INFECTION [None]
  - URINE OUTPUT DECREASED [None]
